FAERS Safety Report 6806019-5 (Version None)
Quarter: 2010Q2

REPORT INFORMATION
  Report Type: 
  Country: None (occurrence: None)
  Receive Date: 20100629
  Receipt Date: 20071130
  Transmission Date: 20101027
  Serious: Yes (Other)
  Sender: FDA-Public Use
  Company Number: US-PFIZER INC-2007102056

PATIENT
  Sex: Female

DRUGS (2)
  1. BEXTRA [Suspect]
     Indication: OSTEOARTHRITIS
     Dates: start: 20040930
  2. VIOXX [Suspect]
     Indication: OSTEOARTHRITIS
     Dates: start: 20021011, end: 20040929

REACTIONS (1)
  - MYOCARDIAL INFARCTION [None]
